FAERS Safety Report 24772818 (Version 2)
Quarter: 2025Q1

REPORT INFORMATION
  Report Type: Report from Study
  Country: US (occurrence: US)
  Receive Date: 20241225
  Receipt Date: 20250122
  Transmission Date: 20250409
  Serious: Yes (Other)
  Sender: ABBVIE
  Company Number: US-ABBVIE-6059995

PATIENT
  Age: 59 Year
  Sex: Female
  Weight: 56.2 kg

DRUGS (20)
  1. RINVOQ [Suspect]
     Active Substance: UPADACITINIB
     Indication: Colitis ulcerative
     Route: 048
     Dates: start: 20231215
  2. RINVOQ [Suspect]
     Active Substance: UPADACITINIB
     Indication: Colitis ulcerative
     Route: 048
  3. ONDANSETRON [Concomitant]
     Active Substance: ONDANSETRON
     Indication: Nausea
  4. OXYCODONE [Concomitant]
     Active Substance: OXYCODONE
     Indication: Breakthrough pain
  5. VYEPTI [Concomitant]
     Active Substance: EPTINEZUMAB-JJMR
     Indication: Depression
  6. REYVOW [Concomitant]
     Active Substance: LASMIDITAN
     Indication: Migraine
  7. RECLAST [Concomitant]
     Active Substance: ZOLEDRONIC ACID
     Indication: Osteopenia
  8. LAMOTRIGINE [Concomitant]
     Active Substance: LAMOTRIGINE
     Indication: Depression
  9. TERIPARATIDE [Concomitant]
     Active Substance: TERIPARATIDE
     Indication: Insomnia
  10. SUMATRIPTAN [Concomitant]
     Active Substance: SUMATRIPTAN
     Indication: Migraine
  11. PILOCARPINE [Concomitant]
     Active Substance: PILOCARPINE
     Indication: Dry mouth
  12. FENTANYL [Concomitant]
     Active Substance: FENTANYL
     Indication: Pain
  13. TRIMETAZIDINE DIHYDROCHLORIDE [Concomitant]
     Active Substance: TRIMETAZIDINE DIHYDROCHLORIDE
     Indication: Vertigo
  14. NURTEC ODT [Concomitant]
     Active Substance: RIMEGEPANT SULFATE
     Indication: Migraine
  15. ACETAZOLAMIDE [Concomitant]
     Active Substance: ACETAZOLAMIDE
     Indication: Inner ear disorder
  16. VITAMIN D [Concomitant]
     Active Substance: VITAMIN D NOS
     Indication: Vitamin supplementation
  17. MIRTAZAPINE [Concomitant]
     Active Substance: MIRTAZAPINE
     Indication: Insomnia
  18. ESTRADIOL [Concomitant]
     Active Substance: ESTRADIOL
     Indication: Product used for unknown indication
  19. PROGESTERONE [Concomitant]
     Active Substance: PROGESTERONE
     Indication: Product used for unknown indication
  20. BOTOX [Concomitant]
     Active Substance: ONABOTULINUMTOXINA
     Indication: Product used for unknown indication

REACTIONS (2)
  - Crohn^s disease [Not Recovered/Not Resolved]
  - Illness [Recovering/Resolving]

NARRATIVE: CASE EVENT DATE: 20240101
